FAERS Safety Report 7380104-4 (Version None)
Quarter: 2011Q1

REPORT INFORMATION
  Report Type: 
  Country: None (occurrence: None)
  Receive Date: 20110329
  Receipt Date: 20100401
  Transmission Date: 20110831
  Serious: No
  Sender: FDA-Public Use
  Company Number: US-MYLANLABS-2010S1004807

PATIENT
  Age: 56 Year
  Sex: Female

DRUGS (1)
  1. ESTRADIOL [Suspect]
     Indication: LIBIDO DISORDER
     Dosage: CHANGED PATCHES TWICE WEEKLY
     Route: 062
     Dates: start: 20100106

REACTIONS (2)
  - BREAST TENDERNESS [None]
  - HYPERHIDROSIS [None]
